FAERS Safety Report 8121756-0 (Version None)
Quarter: 2012Q1

REPORT INFORMATION
  Report Type: 
  Country: None (occurrence: None)
  Receive Date: 20120207
  Receipt Date: 20120207
  Transmission Date: 20120608
  Serious: Yes (Life-Threatening)
  Sender: FDA-Public Use
  Company Number: None

PATIENT
  Age: 50 Year
  Sex: Female

DRUGS (2)
  1. LIDOCAINE [Suspect]
     Indication: HYPERSENSITIVITY
     Dosage: HCL 2% ONCE INJ
     Dates: start: 20100927
  2. LISINOPRIL [Suspect]
     Indication: HYPERSENSITIVITY
     Dosage: 1 PER DAY ORAL
     Route: 048
     Dates: start: 20060124, end: 20060203

REACTIONS (4)
  - HYPERSENSITIVITY [None]
  - SPEECH DISORDER [None]
  - REACTION TO DRUG EXCIPIENTS [None]
  - REACTION TO PRESERVATIVES [None]
